FAERS Safety Report 4573163-5 (Version None)
Quarter: 2005Q1

REPORT INFORMATION
  Report Type: 
  Country: None (occurrence: None)
  Receive Date: 20050208
  Receipt Date: 20040723
  Transmission Date: 20050727
  Serious: No
  Sender: FDA-Public Use
  Company Number: US-GLAXOSMITHKLINE-A0519543A

PATIENT
  Age: 32 Year
  Sex: Female

DRUGS (1)
  1. PAXIL [Suspect]
     Dosage: 10MG PER DAY
     Route: 048

REACTIONS (4)
  - CHEST PAIN [None]
  - PARAESTHESIA [None]
  - TINNITUS [None]
  - VISION BLURRED [None]
